FAERS Safety Report 15481059 (Version 1)
Quarter: 2018Q4

REPORT INFORMATION
  Report Type: Spontaneous
  Country: DE (occurrence: DE)
  Receive Date: 20181010
  Receipt Date: 20181010
  Transmission Date: 20190205
  Serious: Yes (Life-Threatening)
  Sender: FDA-Public Use
  Company Number: DE-SA-2018SA275573

PATIENT
  Age: 13 Year
  Sex: Female

DRUGS (1)
  1. THOMAPYRIN (ACETAMINOPHEN\ASPIRIN\CAFFEINE) [Suspect]
     Active Substance: ACETAMINOPHEN\ASPIRIN\CAFFEINE
     Indication: SUICIDE ATTEMPT
     Dosage: 250 / 50 / 250 MG / TABLETS
     Route: 048

REACTIONS (1)
  - Suicide attempt [Unknown]
